FAERS Safety Report 9419370 (Version 1)
Quarter: 2013Q3

REPORT INFORMATION
  Report Type: Spontaneous
  Country: US (occurrence: US)
  Receive Date: 20130725
  Receipt Date: 20130725
  Transmission Date: 20140515
  Serious: Yes (Other)
  Sender: FDA-Public Use
  Company Number: US-SANOFI-AVENTIS-2013SA073787

PATIENT
  Age: 85 Year
  Sex: Male
  Weight: 77 kg

DRUGS (13)
  1. PLAVIX [Suspect]
     Route: 048
  2. ELIQUIS [Suspect]
     Route: 065
  3. WARFARIN [Suspect]
     Route: 065
  4. ATENOLOL [Concomitant]
     Route: 065
  5. ZOCOR [Concomitant]
     Route: 065
  6. MULTIVITAMINS [Concomitant]
     Route: 065
  7. GLUCOSAMINE [Concomitant]
     Route: 065
  8. FISH OIL [Concomitant]
     Route: 065
  9. TRAMADOL HYDROCHLORIDE [Concomitant]
     Route: 065
  10. GABAPENTIN [Concomitant]
     Route: 065
  11. ASPIRIN [Concomitant]
     Route: 065
  12. SYNTHROID [Concomitant]
     Route: 065
  13. RYTHMOL ^BIOSEDRA^ [Concomitant]
     Route: 065

REACTIONS (8)
  - Atrial fibrillation [Unknown]
  - Drug ineffective [Unknown]
  - Wrong technique in drug usage process [Unknown]
  - Balance disorder [Unknown]
  - Head injury [Unknown]
  - Haematoma [Unknown]
  - Constipation [Recovered/Resolved]
  - Faeces discoloured [Recovered/Resolved]
